FAERS Safety Report 20498818 (Version 1)
Quarter: 2022Q1

REPORT INFORMATION
  Report Type: Spontaneous
  Country: DK (occurrence: DK)
  Receive Date: 20220222
  Receipt Date: 20220222
  Transmission Date: 20220423
  Serious: Yes (Death, Hospitalization, Other)
  Sender: FDA-Public Use
  Company Number: DK-ALKEM LABORATORIES LIMITED-DK-ALKEM-2022-00514

PATIENT
  Age: 65 Year
  Sex: Male

DRUGS (1)
  1. DABIGATRAN ETEXILATE MESYLATE [Suspect]
     Active Substance: DABIGATRAN ETEXILATE MESYLATE
     Indication: Product used for unknown indication
     Dosage: UNK
     Route: 065

REACTIONS (10)
  - Sepsis [Fatal]
  - Atrial fibrillation [Fatal]
  - Delirium [Fatal]
  - Intestinal ischaemia [Fatal]
  - Liver injury [Fatal]
  - Toxicity to various agents [Fatal]
  - Cachexia [Fatal]
  - Cerebellar haemorrhage [Fatal]
  - Shock [Fatal]
  - Confusional state [Fatal]
